FAERS Safety Report 6440640-1 (Version None)
Quarter: 2009Q4

REPORT INFORMATION
  Report Type: 
  Country: None (occurrence: None)
  Receive Date: 20091116
  Receipt Date: 20091103
  Transmission Date: 20100525
  Serious: Yes (Hospitalization)
  Sender: FDA-Public Use
  Company Number: PHHO2009US13669

PATIENT
  Sex: Male

DRUGS (3)
  1. CGP 57148B T35717+ [Suspect]
     Indication: GASTROINTESTINAL STROMAL TUMOUR
     Dosage: 600 MG DAILY
     Route: 048
     Dates: start: 20090813, end: 20091030
  2. COUMADIN [Concomitant]
  3. LOVENOX [Concomitant]
     Dosage: UNK

REACTIONS (8)
  - ABDOMINAL MASS [None]
  - ASCITES [None]
  - DYSPNOEA [None]
  - FIBRIN D DIMER INCREASED [None]
  - HAEMOGLOBIN DECREASED [None]
  - PERICARDIAL EFFUSION [None]
  - PLEURAL EFFUSION [None]
  - PULMONARY EMBOLISM [None]
